FAERS Safety Report 13592403 (Version 1)
Quarter: 2017Q2

REPORT INFORMATION
  Report Type: Spontaneous
  Country: ES (occurrence: ES)
  Receive Date: 20170530
  Receipt Date: 20170530
  Transmission Date: 20170830
  Serious: Yes (Hospitalization, Other)
  Sender: FDA-Public Use
  Company Number: ES-BRISTOL-MYERS SQUIBB COMPANY-BMS-2017-045369

PATIENT
  Age: 78 Year
  Sex: Male
  Weight: 90 kg

DRUGS (7)
  1. ADIRO [Suspect]
     Active Substance: ASPIRIN
     Indication: ANGINA PECTORIS
     Dosage: 100 MG, UNK
     Route: 048
     Dates: start: 20060101, end: 20170425
  2. AMLODIPINO                         /00972401/ [Suspect]
     Active Substance: AMLODIPINE BESYLATE
     Indication: HYPERTENSION
     Dosage: 10 MG, QD
     Route: 048
     Dates: start: 20060101, end: 20170425
  3. SPIOLTO RESPIMAT [Suspect]
     Active Substance: OLODATEROL HYDROCHLORIDE\TIOTROPIUM BROMIDE MONOHYDRATE
     Indication: CHRONIC OBSTRUCTIVE PULMONARY DISEASE
     Dosage: 2.5 MG, BID
     Route: 050
     Dates: start: 20170322, end: 20170425
  4. OPDIVO [Suspect]
     Active Substance: NIVOLUMAB
     Indication: SQUAMOUS CELL CARCINOMA OF LUNG
     Dosage: 270 MG, Q2WK CYCLICALLY
     Route: 042
     Dates: start: 20161128, end: 20170413
  5. ATENOLOL. [Suspect]
     Active Substance: ATENOLOL
     Indication: HYPERTENSION
     Dosage: 50 MG, QD
     Route: 048
     Dates: start: 20060101, end: 20170425
  6. JANUMET [Suspect]
     Active Substance: METFORMIN HYDROCHLORIDE\SITAGLIPTIN PHOSPHATE
     Indication: DIABETES MELLITUS
     Dosage: 1 TAB, BID SITAGLIPTIN50/ METFORMIN1000MG
     Route: 048
  7. NITROPLAST [Suspect]
     Active Substance: NITROGLYCERIN
     Indication: ANGINA PECTORIS
     Dosage: 5 MG, QD
     Route: 062
     Dates: start: 20060101, end: 20170425

REACTIONS (3)
  - Tubulointerstitial nephritis [Recovering/Resolving]
  - Rheumatic fever [Unknown]
  - Dyspnoea [Unknown]

NARRATIVE: CASE EVENT DATE: 201703
